FAERS Safety Report 18696010 (Version 1)
Quarter: 2021Q1

REPORT INFORMATION
  Report Type: Spontaneous
  Country: US (occurrence: US)
  Receive Date: 20210104
  Receipt Date: 20210104
  Transmission Date: 20210419
  Serious: No
  Sender: FDA-Public Use
  Company Number: US-JAZZ-JPI-P-015485

PATIENT
  Age: 42 Year
  Sex: Female
  Weight: 75.91 kg

DRUGS (9)
  1. XYREM [Suspect]
     Active Substance: SODIUM OXYBATE
     Indication: CATAPLEXY
     Dosage: 4.5 GRAM, BID
     Route: 048
     Dates: end: 201306
  2. DILTIAZEM. [Concomitant]
     Active Substance: DILTIAZEM
  3. FLUTICASONE. [Suspect]
     Active Substance: FLUTICASONE
     Indication: MULTIPLE ALLERGIES
     Dosage: UNKNOWN, SINGLE DOSE
     Route: 045
     Dates: start: 201104
  4. FEXOFENADINE [Concomitant]
     Active Substance: FEXOFENADINE HYDROCHLORIDE
  5. DULOXETINE HYDROCHLORIDE. [Concomitant]
     Active Substance: DULOXETINE HYDROCHLORIDE
  6. XYREM [Suspect]
     Active Substance: SODIUM OXYBATE
     Indication: NARCOLEPSY
     Dosage: UNKNOWN TWICE NIGHTLY DOSE
     Route: 048
     Dates: start: 200904
  7. MIDODRINE [Concomitant]
     Active Substance: MIDODRINE
  8. AMPHETAMINE SULFATE. [Concomitant]
     Active Substance: AMPHETAMINE SULFATE
  9. NIFEDIPINE. [Concomitant]
     Active Substance: NIFEDIPINE

REACTIONS (3)
  - Condition aggravated [Unknown]
  - Gastrooesophageal reflux disease [Unknown]
  - Tension [Not Recovered/Not Resolved]

NARRATIVE: CASE EVENT DATE: 201006
